FAERS Safety Report 4733594-7 (Version None)
Quarter: 2005Q3

REPORT INFORMATION
  Report Type: 
  Country: None (occurrence: None)
  Receive Date: 20050729
  Receipt Date: 20050617
  Transmission Date: 20060218
  Serious: No
  Sender: FDA-Public Use
  Company Number: COT_0097_2005

PATIENT
  Sex: Female

DRUGS (5)
  1. VENTAVIS [Suspect]
     Indication: PULMONARY HYPERTENSION
     Dosage: 30 MCG QDAY IH
     Route: 055
  2. VIAGRA [Concomitant]
  3. NORVASC [Concomitant]
  4. FLOVENT [Concomitant]
  5. OXYGEN [Concomitant]

REACTIONS (5)
  - BRONCHOSPASM [None]
  - DIZZINESS [None]
  - HEADACHE [None]
  - NAUSEA [None]
  - PAIN IN JAW [None]
